FAERS Safety Report 18279011 (Version 2)
Quarter: 2020Q4

REPORT INFORMATION
  Report Type: Spontaneous
  Country: US (occurrence: US)
  Receive Date: 20200917
  Receipt Date: 20201104
  Transmission Date: 20210113
  Serious: No
  Sender: FDA-Public Use
  Company Number: US-BAYER-2020-200971

PATIENT
  Sex: Male

DRUGS (2)
  1. CLARITIN LIQUI-GELS [Suspect]
     Active Substance: LORATADINE
     Indication: HYPERSENSITIVITY
     Dosage: 1 DF
     Route: 048
     Dates: start: 202008
  2. CLARITIN LIQUI-GELS [Suspect]
     Active Substance: LORATADINE
     Indication: NASOPHARYNGITIS

REACTIONS (5)
  - Throat irritation [Recovered/Resolved]
  - Feeling hot [Recovered/Resolved]
  - Oropharyngeal discomfort [Recovered/Resolved]
  - Product expiration date issue [None]
  - Product lot number issue [None]

NARRATIVE: CASE EVENT DATE: 20200915
